FAERS Safety Report 20824388 (Version 3)
Quarter: 2022Q3

REPORT INFORMATION
  Report Type: Spontaneous
  Country: US (occurrence: US)
  Receive Date: 20220513
  Receipt Date: 20220701
  Transmission Date: 20221027
  Serious: Yes (Hospitalization)
  Sender: FDA-Public Use
  Company Number: US-JNJFOC-20220517860

PATIENT
  Age: 39 Year
  Sex: Male
  Weight: 95.340 kg

DRUGS (18)
  1. INVEGA SUSTENNA [Interacting]
     Active Substance: PALIPERIDONE PALMITATE
     Indication: Psychotic disorder
     Route: 030
     Dates: start: 20220206
  2. INVEGA SUSTENNA [Interacting]
     Active Substance: PALIPERIDONE PALMITATE
     Indication: Dyskinesia
  3. INVEGA SUSTENNA [Interacting]
     Active Substance: PALIPERIDONE PALMITATE
  4. ZOLOFT [Interacting]
     Active Substance: SERTRALINE HYDROCHLORIDE
     Indication: Depression
     Dosage: GIVE 1 TABLET VIA A G-TUBE ONE TIME A DAY
     Route: 065
     Dates: start: 20210729
  5. VALPROIC ACID [Interacting]
     Active Substance: VALPROIC ACID
     Indication: Seizure
     Dosage: GIVE 15 ML VIA A PEG-TUBE EVERY 8 HRS
     Route: 065
     Dates: start: 20220128
  6. BACLOFEN [Interacting]
     Active Substance: BACLOFEN
     Indication: Muscle spasms
     Dosage: GIVE 1 TABLET VIA PEG-TUBE EVERY 8 HOURS
     Route: 065
     Dates: start: 20211216
  7. PROPRANOLOL [Interacting]
     Active Substance: PROPRANOLOL HYDROCHLORIDE
     Indication: Product used for unknown indication
     Route: 065
  8. SEROQUEL [Interacting]
     Active Substance: QUETIAPINE FUMARATE
     Indication: Psychomotor hyperactivity
     Dosage: 1 TABLET VIA G-TUBE EVERY 6 HOURS
     Route: 065
     Dates: start: 20220117, end: 20220419
  9. AMANTADINE [Interacting]
     Active Substance: AMANTADINE
     Indication: Product used for unknown indication
     Route: 065
  10. METOPROLOL TARTRATE [Suspect]
     Active Substance: METOPROLOL TARTRATE
     Indication: Hypertension
     Dosage: GIVE 1 TABLET (50 MG) VIA A PEG-TUBE TWO TIMES A DAY
     Route: 065
     Dates: start: 20210808
  11. ATORVASTATIN CALCIUM [Concomitant]
     Active Substance: ATORVASTATIN CALCIUM
     Indication: Hyperlipidaemia
     Dosage: AT BED TIME
     Route: 048
     Dates: start: 20211019
  12. DEVICE\XYLITOL [Concomitant]
     Active Substance: DEVICE\XYLITOL
     Indication: Dry mouth
     Dosage: GIVE 1 APPLICATION BY MOUTH FOUR TIMES A DAY
     Route: 048
     Dates: start: 20210823
  13. KETOCONAZOLE [Concomitant]
     Active Substance: KETOCONAZOLE
     Indication: Dermatitis
     Dosage: APPLY TO FACE TOPICALLY AND MAY USE BID PRN
     Route: 061
     Dates: start: 20211227
  14. LASIX [Concomitant]
     Active Substance: FUROSEMIDE
     Indication: Polyuria
     Dosage: 1 TABLET VIA A PEG-TUBE TWO TIMES A DAY
     Route: 065
     Dates: start: 20210527
  15. MELATONIN [Concomitant]
     Active Substance: MELATONIN
     Indication: Insomnia
     Dosage: AT BED TIME
     Route: 048
     Dates: start: 20210927
  16. TYLENOL EXTRA STRENGTH [Concomitant]
     Active Substance: ACETAMINOPHEN
     Indication: Pain
     Dosage: GIVE 2 TABLETS VIA PEG-TUBE EVERY 8 HOURS
     Route: 065
     Dates: start: 20210917
  17. OXYCONTIN [Concomitant]
     Active Substance: OXYCODONE HYDROCHLORIDE
  18. BUSPAR [Concomitant]
     Active Substance: BUSPIRONE HYDROCHLORIDE

REACTIONS (11)
  - Hospitalisation [Unknown]
  - Speech disorder [Recovering/Resolving]
  - Crying [Unknown]
  - Drug interaction [Unknown]
  - Drooling [Unknown]
  - Cognitive disorder [Unknown]
  - Weight decreased [Unknown]
  - Gastrointestinal tube insertion [Unknown]
  - Inappropriate schedule of product administration [Unknown]
  - Product use in unapproved indication [Unknown]
  - Off label use [Unknown]

NARRATIVE: CASE EVENT DATE: 20220206
